FAERS Safety Report 8227646-7 (Version None)
Quarter: 2012Q1

REPORT INFORMATION
  Report Type: 
  Country: None (occurrence: None)
  Receive Date: 20120322
  Receipt Date: 20120316
  Transmission Date: 20120608
  Serious: Yes (Other)
  Sender: FDA-Public Use
  Company Number: US-ABBOTT-12P-163-0902123-00

PATIENT
  Age: 41 Year
  Sex: Female

DRUGS (2)
  1. HUMIRA [Suspect]
     Indication: CROHN'S DISEASE
     Dates: start: 20111024
  2. VICODIN [Concomitant]
     Indication: PAIN

REACTIONS (5)
  - CROHN'S DISEASE [None]
  - INJECTION SITE PAIN [None]
  - ANAL ABSCESS [None]
  - INSOMNIA [None]
  - ANAL FISTULA [None]
